FAERS Safety Report 24768261 (Version 3)
Quarter: 2025Q1

REPORT INFORMATION
  Report Type: Spontaneous
  Country: FR (occurrence: FR)
  Receive Date: 20241223
  Receipt Date: 20250206
  Transmission Date: 20250409
  Serious: Yes (Other)
  Sender: JOHNSON AND JOHNSON
  Company Number: FR-JNJFOC-20241250905

PATIENT
  Age: 50 Year
  Sex: Male

DRUGS (1)
  1. CONCERTA [Suspect]
     Active Substance: METHYLPHENIDATE HYDROCHLORIDE
     Indication: Bipolar disorder
     Route: 065
     Dates: start: 2008

REACTIONS (6)
  - Suicidal ideation [Unknown]
  - Product availability issue [Unknown]
  - Off label use [Unknown]
  - Hypomania [Unknown]
  - Depressed mood [Unknown]
  - Adverse drug reaction [Unknown]
